FAERS Safety Report 23681702 (Version 1)
Quarter: 2024Q1

REPORT INFORMATION
  Report Type: Report from Study
  Country: US (occurrence: US)
  Receive Date: 20240328
  Receipt Date: 20240328
  Transmission Date: 20240409
  Serious: Yes (Hospitalization)
  Sender: FDA-Public Use
  Company Number: US-PARATEK PHARMACEUTICALS, INC.-2024PTK00194

PATIENT
  Sex: Male
  Weight: 70.295 kg

DRUGS (27)
  1. NUZYRA [Suspect]
     Active Substance: OMADACYCLINE
     Indication: Mycobacterial infection
     Dosage: 150 MG, 1X/DAY
     Route: 048
     Dates: start: 202402
  2. AMBISOME [Concomitant]
     Active Substance: AMPHOTERICIN B
  3. CETIRIZINE [Concomitant]
     Active Substance: CETIRIZINE HYDROCHLORIDE
  4. COENZYME Q10 [Concomitant]
     Active Substance: DIETARY SUPPLEMENT\UBIDECARENONE
  5. VITAMINS [Concomitant]
     Active Substance: VITAMINS
  6. PRIMAXIN IV [Concomitant]
     Active Substance: CILASTATIN SODIUM\IMIPENEM
  7. PROBIOTICS NOS [Concomitant]
     Active Substance: PROBIOTICS NOS
  8. TYGACIL [Concomitant]
     Active Substance: TIGECYCLINE
  9. VITAMIN C [Concomitant]
     Active Substance: ASCORBIC ACID
  10. VITAMIN D NOS [Concomitant]
     Active Substance: VITAMIN D NOS
  11. GAS RELIEF [Concomitant]
     Active Substance: DIMETHICONE
  12. TRAZODONE [Concomitant]
     Active Substance: TRAZODONE HYDROCHLORIDE
  13. PREDNISONE [Concomitant]
     Active Substance: PREDNISONE
  14. CALCIUM CARBONATE [Concomitant]
     Active Substance: CALCIUM CARBONATE
  15. MAGNESIUM OXIDE [Concomitant]
     Active Substance: MAGNESIUM OXIDE
  16. FERROUS SULFATE [Concomitant]
     Active Substance: FERROUS SULFATE
  17. ATOVAQUONE [Concomitant]
     Active Substance: ATOVAQUONE
  18. NYSTATIN [Concomitant]
     Active Substance: NYSTATIN
  19. GABAPENTIN [Concomitant]
     Active Substance: GABAPENTIN
  20. FAMOTIDINE [Concomitant]
     Active Substance: FAMOTIDINE
  21. AZITHROMYCIN [Concomitant]
     Active Substance: AZITHROMYCIN
  22. IPRATROPIUM [Concomitant]
     Active Substance: IPRATROPIUM
  23. WARFARIN [Concomitant]
     Active Substance: WARFARIN
  24. TACROLIMUS [Concomitant]
     Active Substance: TACROLIMUS
  25. AZELASTINE [Concomitant]
     Active Substance: AZELASTINE\AZELASTINE HYDROCHLORIDE
  26. EZETIMIBE [Concomitant]
     Active Substance: EZETIMIBE
  27. VALGANCICLOVIR [Concomitant]
     Active Substance: VALGANCICLOVIR

REACTIONS (3)
  - Mycobacterial infection [Unknown]
  - Drug ineffective for unapproved indication [Unknown]
  - Incorrect product administration duration [Not Recovered/Not Resolved]

NARRATIVE: CASE EVENT DATE: 20240101
